FAERS Safety Report 4572625-4 (Version None)
Quarter: 2005Q1

REPORT INFORMATION
  Report Type: 
  Country: None (occurrence: None)
  Receive Date: 20050208
  Receipt Date: 20041027
  Transmission Date: 20050727
  Serious: No
  Sender: FDA-Public Use
  Company Number: US-GLAXOSMITHKLINE-A0531558A

PATIENT
  Age: 40 Year
  Sex: Male

DRUGS (2)
  1. PAXIL CR [Suspect]
     Indication: MIGRAINE PROPHYLAXIS
     Dosage: 12.5MG PER DAY
     Route: 048
     Dates: start: 20040831
  2. AMITRIPTYLINE [Concomitant]
     Indication: MIGRAINE PROPHYLAXIS
     Dosage: 25MG AT NIGHT
     Route: 048
     Dates: start: 20041004

REACTIONS (1)
  - LIBIDO DECREASED [None]
